FAERS Safety Report 11220980 (Version 4)
Quarter: 2015Q3

REPORT INFORMATION
  Report Type: Spontaneous
  Country: US (occurrence: US)
  Receive Date: 20150626
  Receipt Date: 20150909
  Transmission Date: 20151125
  Serious: Yes (Hospitalization, Disabling, Other)
  Sender: FDA-Public Use
  Company Number: US-009507513-1206USA01277

PATIENT
  Sex: Female
  Weight: 97.51 kg

DRUGS (4)
  1. FOSAMAX [Suspect]
     Active Substance: ALENDRONATE SODIUM
     Indication: OSTEOPENIA
     Dosage: UNK UNK, QD
     Route: 048
     Dates: end: 201003
  2. ALENDRONATE SODIUM. [Suspect]
     Active Substance: ALENDRONATE SODIUM
     Indication: OSTEOPENIA
  3. FOSAMAX [Suspect]
     Active Substance: ALENDRONATE SODIUM
     Indication: OSTEOPOROSIS
     Dosage: 70 MG, QW
     Route: 048
     Dates: start: 200210, end: 200901
  4. ALENDRONATE SODIUM. [Suspect]
     Active Substance: ALENDRONATE SODIUM
     Indication: OSTEOPOROSIS
     Dosage: 70 MG, UNK
     Route: 048
     Dates: start: 20090206, end: 20100301

REACTIONS (31)
  - Intramedullary rod insertion [Unknown]
  - Humerus fracture [Unknown]
  - Femur fracture [Recovering/Resolving]
  - Internal fixation of fracture [Unknown]
  - Osteoporosis [Unknown]
  - Pseudoparalysis [Unknown]
  - Poor quality sleep [Unknown]
  - Neutropenia [Unknown]
  - Intervertebral disc degeneration [Not Recovered/Not Resolved]
  - Bone disorder [Unknown]
  - Sternal injury [Unknown]
  - Femur fracture [Unknown]
  - Depression [Unknown]
  - Agitation [Unknown]
  - Meralgia paraesthetica [Not Recovered/Not Resolved]
  - Oral surgery [Recovering/Resolving]
  - Biopsy breast [Unknown]
  - Breast tenderness [Unknown]
  - Femur fracture [Unknown]
  - Oral surgery [Unknown]
  - Anxiety [Unknown]
  - Anaemia postoperative [Unknown]
  - Fracture nonunion [Unknown]
  - Lymphadenopathy [Unknown]
  - Osteoarthritis [Unknown]
  - Intramedullary rod insertion [Unknown]
  - Low turnover osteopathy [Unknown]
  - Myalgia [Recovering/Resolving]
  - Jaw fracture [Unknown]
  - Insomnia [Unknown]
  - Muscle strain [Unknown]

NARRATIVE: CASE EVENT DATE: 20090606
